FAERS Safety Report 5158224-4 (Version None)
Quarter: 2006Q4

REPORT INFORMATION
  Report Type: 
  Country: None (occurrence: None)
  Receive Date: 20061121
  Receipt Date: 20061121
  Transmission Date: 20070319
  Serious: Yes (Other)
  Sender: FDA-Public Use
  Company Number: None

PATIENT
  Age: 53 Year
  Sex: Female
  Weight: 47.6277 kg

DRUGS (5)
  1. NASONEX [Suspect]
     Indication: HYPERSENSITIVITY
     Dosage: 2 SPRAYS EACH NOSTRIL TWICE A DAY NASAL
     Route: 045
     Dates: start: 20061103, end: 20061120
  2. NASONEX [Suspect]
     Indication: SINUSITIS
     Dosage: 2 SPRAYS EACH NOSTRIL TWICE A DAY NASAL
     Route: 045
     Dates: start: 20061103, end: 20061120
  3. ALBUTEROL [Concomitant]
  4. ADVAIR DISK [Concomitant]
  5. SINGULAIR [Concomitant]

REACTIONS (6)
  - EAR DISCOMFORT [None]
  - PHARMACEUTICAL PRODUCT COMPLAINT [None]
  - PHARYNGOLARYNGEAL PAIN [None]
  - POOR QUALITY DRUG ADMINISTERED [None]
  - SINUS DISORDER [None]
  - SINUS HEADACHE [None]
